FAERS Safety Report 10530717 (Version 2)
Quarter: 2015Q1

REPORT INFORMATION
  Report Type: Spontaneous
  Country: FR (occurrence: FR)
  Receive Date: 20141021
  Receipt Date: 20150112
  Transmission Date: 20150720
  Serious: Yes (Life-Threatening, Hospitalization)
  Sender: FDA-Public Use
  Company Number: FR-PFIZER INC-2014283979

PATIENT
  Age: 32 Year
  Sex: Female
  Weight: 56 kg

DRUGS (29)
  1. FLAGYL [Suspect]
     Active Substance: METRONIDAZOLE\METRONIDAZOLE HYDROCHLORIDE
     Indication: INFECTION
     Dosage: 4.5 G, 3X/DAY
     Route: 042
     Dates: start: 20140930, end: 20141006
  2. FLAGYL [Suspect]
     Active Substance: METRONIDAZOLE\METRONIDAZOLE HYDROCHLORIDE
     Dosage: 1.5 G, DAILY
     Route: 042
     Dates: start: 20141010, end: 20141013
  3. GENTAMICIN ^PANPHARMA^ [Suspect]
     Active Substance: GENTAMICIN
     Dosage: 320 MG, 1X/DAY
     Route: 042
     Dates: end: 20140919
  4. EUPANTOL [Suspect]
     Active Substance: PANTOPRAZOLE SODIUM
     Dosage: 40 MG, DAILY
     Route: 042
     Dates: start: 20140910, end: 20141007
  5. LOVENOX [Suspect]
     Active Substance: ENOXAPARIN SODIUM
     Dosage: 40 MG, DAILY
     Route: 058
     Dates: start: 20140910, end: 20141014
  6. MORPHINE [Concomitant]
     Active Substance: MORPHINE
     Dosage: 5 MG, TWICE OR THRICE DAILY AS NEEDED
     Route: 042
  7. TAZOCILLINE [Suspect]
     Active Substance: PIPERACILLIN SODIUM\TAZOBACTAM SODIUM
     Dosage: 4.5 MG, 3X/DAY
     Route: 042
     Dates: start: 20140915, end: 20140921
  8. DECAPEPTYL - SLOW RELEASE [Concomitant]
     Indication: ASSISTED FERTILISATION
     Dosage: 11.25 MG, UNK
     Dates: start: 20140620
  9. ZOPHREN [Concomitant]
     Active Substance: ONDANSETRON
     Indication: PAIN
     Dosage: 4 MG, AS NEEDED
     Route: 042
  10. JOSIR [Concomitant]
     Active Substance: TAMSULOSIN
     Indication: PAIN
     Dosage: 1 TO 2 TABLETS DAILY
     Route: 048
  11. TAZOCILLINE [Suspect]
     Active Substance: PIPERACILLIN SODIUM\TAZOBACTAM SODIUM
     Dosage: 4 G, 3X/DAY
     Route: 042
     Dates: start: 20140913, end: 20140914
  12. FLUCONAZOLE KABI [Suspect]
     Active Substance: FLUCONAZOLE
     Indication: INFECTION
     Dosage: 400 MG, 1X/DAY
     Route: 042
     Dates: start: 20140927, end: 20141005
  13. FLUCONAZOLE KABI [Suspect]
     Active Substance: FLUCONAZOLE
     Dosage: 400 MG, 1X/DAY
     Route: 042
     Dates: start: 20141010, end: 20141012
  14. GENTAMICIN ^PANPHARMA^ [Suspect]
     Active Substance: GENTAMICIN
     Dosage: 320 MG, 1X/DAY
     Route: 042
     Dates: start: 20141007, end: 20141009
  15. CONTRAMAL [Suspect]
     Active Substance: TRAMADOL HYDROCHLORIDE
     Indication: PAIN
     Dosage: 50 MG, 3X/DAY (BY ORAL ROUTE OR INJECTION ACCORDING TO THE PAIN)
     Route: 042
     Dates: start: 20140911, end: 20141014
  16. OMIX LP [Concomitant]
     Indication: PAIN
     Dosage: 1 TO 2 TABLETS DAILY
     Route: 048
     Dates: start: 20141012, end: 20141014
  17. CEFOTAXIME [Suspect]
     Active Substance: CEFOTAXIME\CEFOTAXIME SODIUM
     Indication: INFECTION
     Dosage: 1 G, 3X/DAY
     Route: 042
     Dates: start: 20141010, end: 20141013
  18. ACUPAN [Concomitant]
     Active Substance: NEFOPAM HYDROCHLORIDE
     Indication: PAIN
  19. ECONAZOLE [Concomitant]
     Active Substance: ECONAZOLE
     Route: 061
  20. TAZOCILLINE [Suspect]
     Active Substance: PIPERACILLIN SODIUM\TAZOBACTAM SODIUM
     Dosage: 4 G, 3X/DAY
     Route: 042
     Dates: start: 20140922, end: 20141008
  21. AMOXICILLINE ARROW [Suspect]
     Active Substance: AMOXICILLIN
     Indication: INFECTION
     Dosage: 1 G, 3X/DAY
     Route: 048
     Dates: start: 20141010, end: 20141013
  22. VANCOMYCIN MYLAN [Concomitant]
     Active Substance: VANCOMYCIN
     Dosage: 1 G, SINGLE
     Route: 042
     Dates: start: 20141007, end: 20141007
  23. PARACETAMOL PANPHARMA [Concomitant]
     Active Substance: ACETAMINOPHEN
     Dosage: UP TO 3 G, DAILY
     Route: 042
  24. SPASFON [Concomitant]
     Active Substance: PHLOROGLUCINOL
     Indication: PAIN
     Dosage: 2 TO 6 AMPOULES DAILY
     Route: 042
     Dates: start: 20141011, end: 20141012
  25. OXYNORM [Concomitant]
     Active Substance: OXYCODONE HYDROCHLORIDE
     Indication: PAIN
  26. GENTAMICIN ^PANPHARMA^ [Suspect]
     Active Substance: GENTAMICIN
     Dosage: 240 MG, 1X/DAY
     Route: 042
     Dates: start: 20140912
  27. GENTAMICIN ^PANPHARMA^ [Suspect]
     Active Substance: GENTAMICIN
     Dosage: 240 MG, 1X/DAY
     Route: 042
     Dates: start: 20140922, end: 20140929
  28. TRANXENE T-TAB [Concomitant]
     Active Substance: CLORAZEPATE DIPOTASSIUM
     Indication: PAIN
     Dosage: 20 MG, 1X/DAY
     Route: 048
  29. ALPRAZOLAM. [Concomitant]
     Active Substance: ALPRAZOLAM
     Indication: PAIN
     Dosage: 0.125 MG, 1X/DAY
     Route: 048

REACTIONS (30)
  - Pancytopenia [Recovering/Resolving]
  - Thrombocytopenia [Recovering/Resolving]
  - Enterococcus test positive [None]
  - Gamma-glutamyltransferase increased [None]
  - Hepatocellular injury [None]
  - Transaminases increased [Recovering/Resolving]
  - Neutropenia [Recovered/Resolved]
  - Pelvic sepsis [None]
  - Pseudomonas test positive [None]
  - Staphylococcus test positive [None]
  - Candida test positive [None]
  - Leukopenia [Recovering/Resolving]
  - Aspartate aminotransferase increased [Recovered/Resolved]
  - Drug reaction with eosinophilia and systemic symptoms [Recovered/Resolved]
  - Blood triglycerides increased [Recovered/Resolved]
  - Bacteroides test positive [None]
  - Anaemia [Recovering/Resolving]
  - Pyrexia [Recovered/Resolved]
  - Eosinophilia [Recovered/Resolved]
  - Ileus paralytic [None]
  - Pelvic abscess [None]
  - Blood alkaline phosphatase increased [None]
  - Pathogen resistance [None]
  - Prothrombin time prolonged [None]
  - Histiocytosis haematophagic [None]
  - Rash [Recovered/Resolved]
  - Serum ferritin increased [Recovered/Resolved]
  - Blood creatine phosphokinase increased [Recovered/Resolved]
  - Escherichia test positive [None]
  - Enterobacter test positive [None]

NARRATIVE: CASE EVENT DATE: 20141008
